FAERS Safety Report 6318278-6 (Version None)
Quarter: 2009Q3

REPORT INFORMATION
  Report Type: 
  Country: None (occurrence: None)
  Receive Date: 20090820
  Receipt Date: 20090820
  Transmission Date: 20100115
  Serious: Yes (Other)
  Sender: FDA-Public Use
  Company Number: None

PATIENT
  Age: 60 Year
  Sex: Female
  Weight: 68.0396 kg

DRUGS (1)
  1. IBUPROFEN [Suspect]
     Indication: ARTHRALGIA
     Dosage: 800MG EVERY 8 HOURS PO
     Route: 048
     Dates: start: 20090608, end: 20090801

REACTIONS (3)
  - AMNESIA [None]
  - CONFUSIONAL STATE [None]
  - PRODUCT SUBSTITUTION ISSUE [None]
